FAERS Safety Report 7261766-9 (Version None)
Quarter: 2011Q1

REPORT INFORMATION
  Report Type: 
  Country: None (occurrence: None)
  Receive Date: 20110130
  Receipt Date: 20101103
  Transmission Date: 20110831
  Serious: No
  Sender: FDA-Public Use
  Company Number: US-ABBOTT-10P-163-0683096-00

PATIENT
  Age: 43 Year
  Sex: Female

DRUGS (12)
  1. PERCOCET [Concomitant]
     Indication: PAIN
     Dosage: 10MG/325MG
  2. NEURONTIN [Concomitant]
     Indication: PAIN
  3. TRAMADOL HCL [Concomitant]
     Indication: PAIN
     Dosage: ONE TABLET 2-3 TIMES DAILY
  4. PRILOSEC [Concomitant]
     Indication: PRODUCT USED FOR UNKNOWN INDICATION
  5. PROZAC [Concomitant]
     Indication: DEPRESSION
  6. ZANAFLEX [Concomitant]
     Indication: BACK PAIN
  7. RESOTRIL [Concomitant]
     Indication: INSOMNIA
  8. COMPAZINE [Concomitant]
     Indication: VOMITING
  9. COMPAZINE [Concomitant]
     Indication: NAUSEA
  10. HUMIRA [Suspect]
     Indication: CROHN'S DISEASE
     Dates: start: 20101021, end: 20101103
  11. KLONOPIN [Concomitant]
     Indication: ANXIETY
  12. VISTARIL [Concomitant]
     Indication: ANXIETY

REACTIONS (5)
  - DYSPNOEA [None]
  - ASTHENIA [None]
  - DRUG HYPERSENSITIVITY [None]
  - PAIN [None]
  - DIZZINESS [None]
